FAERS Safety Report 20798841 (Version 3)
Quarter: 2022Q2

REPORT INFORMATION
  Report Type: Spontaneous
  Country: US (occurrence: US)
  Receive Date: 20220507
  Receipt Date: 20220622
  Transmission Date: 20220721
  Serious: No
  Sender: FDA-Public Use
  Company Number: US-UNITED THERAPEUTICS-UNT-2022-009129

PATIENT
  Age: 52 Year
  Sex: Male

DRUGS (2)
  1. REMODULIN [Suspect]
     Active Substance: TREPROSTINIL
     Indication: Pulmonary arterial hypertension
     Dosage: 0.0077 ?G/KG, CONTINUING
     Route: 058
     Dates: start: 20220422
  2. REMODULIN [Suspect]
     Active Substance: TREPROSTINIL
     Dosage: 0.00910 ?G/KG, CONTINUING
     Route: 058

REACTIONS (8)
  - Malaise [Unknown]
  - Nausea [Recovered/Resolved]
  - Headache [Recovered/Resolved]
  - Pain [Recovered/Resolved]
  - Flushing [Unknown]
  - Infusion site erythema [Recovered/Resolved]
  - Infusion site pain [Not Recovered/Not Resolved]
  - Device malfunction [Unknown]

NARRATIVE: CASE EVENT DATE: 20220401
